FAERS Safety Report 6704638-8 (Version None)
Quarter: 2010Q2

REPORT INFORMATION
  Report Type: 
  Country: None (occurrence: None)
  Receive Date: 20100430
  Receipt Date: 20100420
  Transmission Date: 20101027
  Serious: Yes (Death)
  Sender: FDA-Public Use
  Company Number: US-TYCO HEALTHCARE/MALLINCKRODT-T201001064

PATIENT
  Age: 56 Year
  Sex: Male

DRUGS (2)
  1. PAMELOR [Suspect]
     Dosage: UNK
  2. ALL OTHER THERAPEUTIC PRODUCTS [Suspect]
     Dosage: UNK

REACTIONS (2)
  - COMPLETED SUICIDE [None]
  - DRUG TOXICITY [None]
